FAERS Safety Report 25317729 (Version 1)
Quarter: 2025Q2

REPORT INFORMATION
  Report Type: Spontaneous
  Country: CN (occurrence: CN)
  Receive Date: 20250515
  Receipt Date: 20250515
  Transmission Date: 20250717
  Serious: Yes (Hospitalization, Other)
  Sender: SANOFI AVENTIS
  Company Number: CN-SA-2025SA136666

PATIENT
  Age: 71 Year
  Sex: Female
  Weight: 60 kg

DRUGS (3)
  1. INSULIN GLARGINE [Suspect]
     Active Substance: INSULIN GLARGINE
     Indication: Blood glucose increased
     Dosage: 16 IU, QD
     Route: 058
     Dates: start: 20250421, end: 20250423
  2. GLIMEPIRIDE [Suspect]
     Active Substance: GLIMEPIRIDE
     Indication: Blood glucose increased
     Dosage: 2 MG, QD
     Route: 048
     Dates: start: 20250421, end: 20250423
  3. VILDAGLIPTIN [Concomitant]
     Active Substance: VILDAGLIPTIN
     Indication: Blood glucose increased
     Dosage: 50 MG, QD
     Route: 048
     Dates: start: 20250421, end: 20250423

REACTIONS (5)
  - Hypoglycaemic coma [Recovering/Resolving]
  - Disorganised speech [Not Recovered/Not Resolved]
  - Hallucination [Recovered/Resolved]
  - Altered state of consciousness [Recovered/Resolved]
  - Unresponsive to stimuli [Not Recovered/Not Resolved]

NARRATIVE: CASE EVENT DATE: 20250422
